FAERS Safety Report 5274100-0 (Version None)
Quarter: 2007Q1

REPORT INFORMATION
  Report Type: 
  Country: None (occurrence: None)
  Receive Date: 20070323
  Receipt Date: 20070312
  Transmission Date: 20070707
  Serious: Yes (Other)
  Sender: FDA-Public Use
  Company Number: PHBS2007BE04335

PATIENT
  Age: 40 Year
  Sex: Male

DRUGS (1)
  1. VOLTAREN [Suspect]
     Indication: BACK PAIN
     Dosage: 75MG INTRAMUSCULAR INJECTION
     Dates: start: 20070302

REACTIONS (4)
  - DRUG ADMINISTRATION ERROR [None]
  - PARALYSIS [None]
  - PARESIS [None]
  - SCIATIC NERVE INJURY [None]
